FAERS Safety Report 25185346 (Version 1)
Quarter: 2025Q2

REPORT INFORMATION
  Report Type: Spontaneous
  Country: US (occurrence: None)
  Receive Date: 20250410
  Receipt Date: 20250410
  Transmission Date: 20250717
  Serious: No
  Sender: FDA-CTU
  Company Number: None

PATIENT
  Age: 29 Year
  Sex: Male
  Weight: 67.5 kg

DRUGS (1)
  1. MECLIZINE [Suspect]
     Active Substance: MECLIZINE HYDROCHLORIDE
     Indication: Vertigo
     Dosage: 1 CAPSULE EVERY 8 HOURS ORAL
     Route: 048
     Dates: start: 20250408, end: 20250409

REACTIONS (4)
  - Somnolence [None]
  - Somnolence [None]
  - Brain fog [None]
  - Drug ineffective [None]

NARRATIVE: CASE EVENT DATE: 20250409
